FAERS Safety Report 4331212-3 (Version None)
Quarter: 2004Q2

REPORT INFORMATION
  Report Type: 
  Country: None (occurrence: None)
  Receive Date: 20040402
  Receipt Date: 20040330
  Transmission Date: 20050107
  Serious: Yes (Disabling)
  Sender: FDA-Public Use
  Company Number: 7707

PATIENT
  Age: 24 Month
  Sex: Male

DRUGS (5)
  1. VINCRISTINE [Suspect]
     Indication: ACUTE LYMPHOCYTIC LEUKAEMIA
     Dosage: 1.5 MG/M2 WEEKLY/1.5 MG/M2 MONTHLY
  2. CYTARABINE [Concomitant]
  3. METHOTREXATE [Concomitant]
  4. ASPARAGINASE [Concomitant]
  5. PREDNISOLONE [Concomitant]

REACTIONS (7)
  - EYELID PTOSIS [None]
  - HYPERMETROPIA [None]
  - NEUROPATHY PERIPHERAL [None]
  - NEUROTOXICITY [None]
  - PAIN IN JAW [None]
  - STRABISMUS [None]
  - VITH NERVE PARALYSIS [None]
